FAERS Safety Report 5781734-3 (Version None)
Quarter: 2008Q2

REPORT INFORMATION
  Report Type: 
  Country: None (occurrence: None)
  Receive Date: 20080623
  Receipt Date: 20071025
  Transmission Date: 20081010
  Serious: No
  Sender: FDA-Public Use
  Company Number: US-ASTRAZENECA-2007UW25993

PATIENT
  Age: 76 Year
  Sex: Male

DRUGS (2)
  1. RHINOCORT [Suspect]
     Route: 045
  2. SINGULAIR [Suspect]

REACTIONS (2)
  - DEPRESSION [None]
  - DYSPEPSIA [None]
